FAERS Safety Report 16268525 (Version 2)
Quarter: 2020Q2

REPORT INFORMATION
  Report Type: Report from Study
  Country: GB (occurrence: GB)
  Receive Date: 20190503
  Receipt Date: 20200620
  Transmission Date: 20200713
  Serious: Yes (Hospitalization)
  Sender: FDA-Public Use
  Company Number: GB-ROCHE-2311042

PATIENT

DRUGS (3)
  1. CYTARABINE. [Suspect]
     Active Substance: CYTARABINE
     Indication: MANTLE CELL LYMPHOMA RECURRENT
     Dosage: DAY 1 TO DAY 3?28 DAY CYCLE
     Route: 042
  2. BENDAMUSTINE [Suspect]
     Active Substance: BENDAMUSTINE
     Indication: MANTLE CELL LYMPHOMA RECURRENT
     Dosage: DAY 1 AND DAY 2?28 DAY CYCLE
     Route: 042
  3. RITUXIMAB. [Suspect]
     Active Substance: RITUXIMAB
     Indication: MANTLE CELL LYMPHOMA RECURRENT
     Dosage: DAY 1?28 DAY CYCLE
     Route: 042

REACTIONS (1)
  - Chondrocalcinosis pyrophosphate [Unknown]
